FAERS Safety Report 5732910-7 (Version None)
Quarter: 2008Q2

REPORT INFORMATION
  Report Type: 
  Country: None (occurrence: None)
  Receive Date: 20080509
  Receipt Date: 20080304
  Transmission Date: 20081010
  Serious: No
  Sender: FDA-Public Use
  Company Number: A0713289A

PATIENT
  Age: 81 Year
  Sex: Male

DRUGS (3)
  1. COREG CR [Suspect]
     Indication: ARTERIAL STENOSIS
     Dosage: 20MG PER DAY
     Route: 048
     Dates: start: 20071201
  2. DIABETES MEDICATION [Concomitant]
  3. MULTIPLE MEDICATIONS [Concomitant]

REACTIONS (3)
  - ADVERSE DRUG REACTION [None]
  - DIARRHOEA [None]
  - DIZZINESS [None]
